FAERS Safety Report 23089421 (Version 1)
Quarter: 2023Q4

REPORT INFORMATION
  Report Type: Spontaneous
  Country: US (occurrence: US)
  Receive Date: 20231020
  Receipt Date: 20231020
  Transmission Date: 20240109
  Serious: Yes (Life-Threatening, Hospitalization, Other)
  Sender: FDA-Public Use
  Company Number: US-drreddys-SPO/USA/23/0180022

PATIENT
  Age: 49 Year
  Sex: Male

DRUGS (4)
  1. FENTANYL [Suspect]
     Active Substance: FENTANYL\FENTANYL CITRATE
     Indication: Sedative therapy
  2. PROPOFOL [Concomitant]
     Active Substance: PROPOFOL
     Indication: Sedative therapy
  3. ETOMIDATE [Concomitant]
     Active Substance: ETOMIDATE
     Indication: Sedative therapy
  4. ROCURONIUM [Concomitant]
     Active Substance: ROCURONIUM BROMIDE
     Indication: Sedative therapy

REACTIONS (2)
  - Mechanical ventilation complication [Recovered/Resolved]
  - Muscle rigidity [Recovered/Resolved]
